FAERS Safety Report 4415153-9 (Version None)
Quarter: 2004Q3

REPORT INFORMATION
  Report Type: 
  Country: None (occurrence: None)
  Receive Date: 20040730
  Receipt Date: 20040719
  Transmission Date: 20050211
  Serious: Yes (Hospitalization)
  Sender: FDA-Public Use
  Company Number: 2004029704

PATIENT
  Age: 68 Year
  Sex: Female
  Weight: 104 kg

DRUGS (12)
  1. ATORVASTATIN CALCIUM [Suspect]
     Indication: ILL-DEFINED DISORDER
     Dosage: 10 MG (1 IN 1 D), ORAL
     Route: 048
  2. AMLODIPINE [Suspect]
     Indication: ILL-DEFINED DISORDER
     Dosage: 10 MG (1 IN 1 D), ORAL
     Route: 048
  3. GLICLAZIDE (GLICLAZIDE) [Suspect]
     Indication: ILL-DEFINED DISORDER
     Dosage: (1 IN 1 D), ORAL
     Route: 048
     Dates: start: 19990315, end: 20040326
  4. INSULIN [Suspect]
     Indication: ILL-DEFINED DISORDER
     Dosage: (2 IN 1 D), SUBCUTANEOUS
     Route: 058
     Dates: start: 20040326
  5. FLUINDIONE (FLUINDIONE) [Suspect]
     Indication: ILL-DEFINED DISORDER
     Dosage: 30 MG (1 IN 1 D), ORAL
     Route: 048
     Dates: start: 20040208
  6. FUROSEMIDE [Suspect]
     Indication: ILL-DEFINED DISORDER
     Dosage: 40 MG (1 IN 1 D), ORAL
     Route: 048
     Dates: start: 20040301
  7. LOSARTAN POTASSIUM [Concomitant]
  8. NICORANDIL (NICORANDIL) [Concomitant]
  9. ALPRAZOLAM [Concomitant]
  10. NITROGLYCERIN [Concomitant]
  11. METFORMIN HCL [Concomitant]
  12. INITARD (INSULIN, INSULIN INJECTION, ISOPHANE) [Concomitant]

REACTIONS (6)
  - BLOOD DISORDER [None]
  - CONDITION AGGRAVATED [None]
  - DIABETES MELLITUS INADEQUATE CONTROL [None]
  - DIABETIC NEPHROPATHY [None]
  - RENAL FAILURE CHRONIC [None]
  - THROMBOCYTOPENIA [None]
